FAERS Safety Report 10073152 (Version 1)
Quarter: 2014Q2

REPORT INFORMATION
  Report Type: Spontaneous
  Country: US (occurrence: US)
  Receive Date: 20140411
  Receipt Date: 20140411
  Transmission Date: 20141212
  Serious: No
  Sender: FDA-Public Use
  Company Number: US-009507513-1404USA000741

PATIENT
  Sex: Female

DRUGS (4)
  1. CLARITIN [Suspect]
     Indication: RHINORRHOEA
     Dosage: 17 G, QD
     Route: 048
     Dates: start: 20140319, end: 20140320
  2. CLARITIN [Suspect]
     Indication: UPPER-AIRWAY COUGH SYNDROME
  3. CLARITIN [Suspect]
     Indication: LACRIMATION INCREASED
  4. CLARITIN [Suspect]
     Indication: EYE DISORDER

REACTIONS (2)
  - Overdose [Unknown]
  - Drug ineffective [Unknown]
